FAERS Safety Report 19803278 (Version 1)
Quarter: 2021Q3

REPORT INFORMATION
  Report Type: Spontaneous
  Country: US (occurrence: US)
  Receive Date: 20210908
  Receipt Date: 20210908
  Transmission Date: 20211014
  Serious: Yes (Other)
  Sender: FDA-Public Use
  Company Number: US-BAYER-2021-206290

PATIENT

DRUGS (1)
  1. LOTRIMIN DAILY SWEAT AND ODOR CONTROL [Suspect]
     Active Substance: STARCH, PREGELATINIZED CORN
     Dosage: UNK

REACTIONS (3)
  - Drug ineffective [Unknown]
  - Haemorrhage [Unknown]
  - Fungal infection [Unknown]
